FAERS Safety Report 4827832-X (Version None)
Quarter: 2005Q4

REPORT INFORMATION
  Report Type: 
  Country: None (occurrence: None)
  Receive Date: 20051114
  Receipt Date: 20051114
  Transmission Date: 20060501
  Serious: Yes (Disabling)
  Sender: FDA-Public Use
  Company Number: None

PATIENT
  Age: 19 Year
  Sex: Female
  Weight: 63.5036 kg

DRUGS (2)
  1. LARIAM [Suspect]
     Indication: FOREIGN TRAVEL
     Dosage: ONE PILL ONCE WEEKLY PO
     Route: 048
     Dates: start: 20010715, end: 20011015
  2. LARIAM [Suspect]
     Indication: MALARIA PROPHYLAXIS
     Dosage: ONE PILL ONCE WEEKLY PO
     Route: 048
     Dates: start: 20010715, end: 20011015

REACTIONS (9)
  - ANXIETY [None]
  - DEPRESSION [None]
  - HALLUCINATION [None]
  - NAUSEA [None]
  - NIGHTMARE [None]
  - PARANOIA [None]
  - SKIN DISCOMFORT [None]
  - SOCIAL AVOIDANT BEHAVIOUR [None]
  - WEIGHT DECREASED [None]
